FAERS Safety Report 16950869 (Version 1)
Quarter: 2019Q4

REPORT INFORMATION
  Report Type: Spontaneous
  Country: CA (occurrence: CA)
  Receive Date: 20191023
  Receipt Date: 20191023
  Transmission Date: 20200122
  Serious: Yes (Other)
  Sender: FDA-Public Use
  Company Number: CA-PFIZER INC-2019454531

PATIENT
  Age: 55 Year
  Sex: Female

DRUGS (11)
  1. DILANTIN [Interacting]
     Active Substance: PHENYTOIN
     Dosage: 300 MG, (5 EVERY 1 WEEK)
     Route: 065
  2. ZITHROMAX [Concomitant]
     Active Substance: AZITHROMYCIN DIHYDRATE
     Dosage: UNK
  3. DILANTIN [Suspect]
     Active Substance: PHENYTOIN
     Indication: EPILEPSY
     Dosage: 100 MG, 3X/DAY
     Route: 065
  4. STRESSTABS [Concomitant]
     Active Substance: DIETARY SUPPLEMENT
     Dosage: UNK
     Route: 065
  5. DILANTIN [Interacting]
     Active Substance: PHENYTOIN
     Dosage: 175 MG, (2 EVERY 1 WEEK)
     Route: 065
  6. SYNTHROID [Concomitant]
     Active Substance: LEVOTHYROXINE SODIUM
     Dosage: UNK
     Route: 065
  7. DILANTIN [Interacting]
     Active Substance: PHENYTOIN
     Dosage: 300 MG, 1X/DAY
     Route: 065
  8. CYANOCOBALAMIN. [Concomitant]
     Active Substance: CYANOCOBALAMIN
     Dosage: UNK
     Route: 065
  9. CLINDAMYCIN. [Interacting]
     Active Substance: CLINDAMYCIN
     Indication: LYME DISEASE
     Dosage: UNK
     Route: 065
  10. AMOXICILLIN. [Concomitant]
     Active Substance: AMOXICILLIN
     Dosage: UNK
  11. PHENOBARBITAL. [Concomitant]
     Active Substance: PHENOBARBITAL
     Dosage: UNK
     Route: 065

REACTIONS (9)
  - Paraesthesia [Recovered/Resolved]
  - Gait disturbance [Recovered/Resolved]
  - Hyperaesthesia [Recovered/Resolved]
  - Neuropathy peripheral [Recovered/Resolved]
  - Dyspepsia [Recovered/Resolved]
  - Hereditary disorder [Recovered/Resolved]
  - Drug interaction [Recovered/Resolved]
  - Peripheral swelling [Recovered/Resolved]
  - Therapeutic product effect prolonged [Recovered/Resolved]
